FAERS Safety Report 5560145-X (Version None)
Quarter: 2007Q4

REPORT INFORMATION
  Report Type: 
  Country: None (occurrence: None)
  Receive Date: 20071214
  Receipt Date: 20071025
  Transmission Date: 20080405
  Serious: No
  Sender: FDA-Public Use
  Company Number: US-ABBOTT-07P-163-0422181-00

PATIENT
  Sex: Female
  Weight: 92.616 kg

DRUGS (26)
  1. HUMIRA [Suspect]
     Indication: CROHN'S DISEASE
     Route: 058
     Dates: start: 20071011, end: 20071011
  2. HUMIRA [Suspect]
     Route: 058
     Dates: start: 20071024, end: 20071024
  3. HUMIRA [Suspect]
     Route: 058
     Dates: start: 20071025
  4. PREDNISONE [Concomitant]
     Indication: DRUG USE FOR UNKNOWN INDICATION
  5. CALCIUM [Concomitant]
     Indication: DRUG USE FOR UNKNOWN INDICATION
  6. VITAMIN E [Concomitant]
     Indication: DRUG USE FOR UNKNOWN INDICATION
  7. CENTRUM [Concomitant]
     Indication: DRUG USE FOR UNKNOWN INDICATION
  8. ZANAFLEX [Concomitant]
     Indication: DRUG USE FOR UNKNOWN INDICATION
  9. MERCAPTOPURINE [Concomitant]
     Indication: DRUG USE FOR UNKNOWN INDICATION
  10. FOLIC ACID [Concomitant]
     Indication: DRUG USE FOR UNKNOWN INDICATION
  11. STOOL SOFTNERS [Concomitant]
     Indication: DRUG USE FOR UNKNOWN INDICATION
  12. PROMETAZINE [Concomitant]
     Indication: NAUSEA
  13. PANTOPRAZOLE SODIUM [Concomitant]
     Indication: DRUG USE FOR UNKNOWN INDICATION
  14. CIRRUS [Concomitant]
     Indication: DRUG USE FOR UNKNOWN INDICATION
  15. ONDANSETRON [Concomitant]
     Indication: DRUG USE FOR UNKNOWN INDICATION
  16. LEVASIN [Concomitant]
     Indication: MUSCLE SPASMS
     Route: 060
  17. DETROL LA [Concomitant]
     Indication: DRUG USE FOR UNKNOWN INDICATION
  18. ROPINIROLE HCL [Concomitant]
     Indication: DRUG USE FOR UNKNOWN INDICATION
  19. CYMBATAL [Concomitant]
     Indication: DRUG USE FOR UNKNOWN INDICATION
     Dates: start: 20071011
  20. CYMBATAL [Concomitant]
     Dates: start: 20071011
  21. PREDNISONE [Concomitant]
     Dates: start: 20070927
  22. PREDNISONE [Concomitant]
     Dates: start: 20070927
  23. SUCRALFATE [Concomitant]
     Indication: DRUG USE FOR UNKNOWN INDICATION
  24. EPINEPHRINE [Concomitant]
     Indication: DRUG USE FOR UNKNOWN INDICATION
  25. BENADRYL [Concomitant]
     Indication: PREMEDICATION
  26. IBUPROFEN [Concomitant]
     Indication: PREMEDICATION

REACTIONS (4)
  - DIZZINESS [None]
  - HEADACHE [None]
  - THROAT IRRITATION [None]
  - VISUAL DISTURBANCE [None]
